FAERS Safety Report 16326591 (Version 1)
Quarter: 2019Q2

REPORT INFORMATION
  Report Type: Report from Study
  Country: US (occurrence: US)
  Receive Date: 20190517
  Receipt Date: 20190517
  Transmission Date: 20190711
  Serious: Yes (Hospitalization)
  Sender: FDA-Public Use
  Company Number: US-GILEAD-2018-0380152

PATIENT
  Age: 71 Year
  Sex: Female

DRUGS (6)
  1. AZTREONAM LYSINE [Suspect]
     Active Substance: AZTREONAM LYSINE
     Indication: CYSTIC FIBROSIS
     Dosage: 75 MG, TID
     Route: 055
     Dates: end: 201807
  2. PROCAL [CALCIUM ACETATE] [Concomitant]
     Dosage: UNKNOWN
  3. PREDNISONE. [Concomitant]
     Active Substance: PREDNISONE
     Indication: INFECTION
     Dosage: 10MG
  4. SODIUM CHLORIDE. [Concomitant]
     Active Substance: SODIUM CHLORIDE
     Dosage: UNKNOWN
  5. OXYGEN. [Concomitant]
     Active Substance: OXYGEN
     Dosage: UNKNOWN
  6. AZTREONAM LYSINE [Suspect]
     Active Substance: AZTREONAM LYSINE
     Indication: BRONCHIECTASIS

REACTIONS (3)
  - Dyspnoea [Not Recovered/Not Resolved]
  - Malaise [Unknown]
  - Blood gases abnormal [Not Recovered/Not Resolved]

NARRATIVE: CASE EVENT DATE: 201807
